FAERS Safety Report 7352228-9 (Version None)
Quarter: 2011Q1

REPORT INFORMATION
  Report Type: 
  Country: None (occurrence: None)
  Receive Date: 20110309
  Receipt Date: 20110309
  Transmission Date: 20110831
  Serious: Yes (Hospitalization)
  Sender: FDA-Public Use
  Company Number: None

PATIENT
  Age: 60 Year
  Sex: Male
  Weight: 69 kg

DRUGS (8)
  1. IXEMPRA KIT [Suspect]
     Indication: PROSTATE CANCER
     Dosage: 70 MG ONCE IV DRIP
     Route: 041
  2. ALOXI [Concomitant]
  3. ZOMETA [Concomitant]
  4. DECADRON [Concomitant]
  5. BENADRYL [Concomitant]
  6. ZANTAC [Concomitant]
  7. ACETAMINOPHEN [Concomitant]
  8. NEULASTA [Suspect]

REACTIONS (4)
  - ATRIAL FIBRILLATION [None]
  - ACUTE MYOCARDIAL INFARCTION [None]
  - CONDUCTION DISORDER [None]
  - SUPRAVENTRICULAR EXTRASYSTOLES [None]
